FAERS Safety Report 4690718-8 (Version None)
Quarter: 2005Q2

REPORT INFORMATION
  Report Type: 
  Country: None (occurrence: None)
  Receive Date: 20050614
  Receipt Date: 20050614
  Transmission Date: 20051028
  Serious: Yes (Death)
  Sender: FDA-Public Use
  Company Number: None

PATIENT
  Sex: Male
  Weight: 71.7 kg

DRUGS (8)
  1. LEXAPRO [Suspect]
     Indication: ANTIDEPRESSANT THERAPY
     Dosage: 10 MG DAILY PO
     Route: 048
  2. NEXIUM [Suspect]
     Indication: GASTROOESOPHAGEAL REFLUX DISEASE
     Dosage: 40 MG DAILY PO
     Route: 048
  3. AVODART [Suspect]
     Dosage: 0.5 MG DAILY PO
     Route: 048
  4. ARICEPT [Suspect]
     Dosage: 5 MG DAILY PO
     Route: 048
  5. NORVASC [Suspect]
     Indication: HYPERTENSION
     Dosage: 10 MG DAILY PO
  6. LIPITOR [Suspect]
     Indication: HYPERLIPIDAEMIA
     Dosage: 10 MG DAILY PO
     Route: 048
  7. CARDURA [Suspect]
     Indication: HYPERTENSION
     Dosage: 4 MG DAILY PO
     Route: 048
  8. IRESSA [Suspect]
     Indication: NEOPLASM MALIGNANT
     Dosage: 250 MG DAILY PO
     Route: 048
     Dates: start: 20050509, end: 20050409

REACTIONS (3)
  - HYPOTENSION [None]
  - HYPOXIA [None]
  - PULMONARY EMBOLISM [None]
